FAERS Safety Report 4993374-4 (Version None)
Quarter: 2006Q2

REPORT INFORMATION
  Report Type: 
  Country: None (occurrence: None)
  Receive Date: 20060505
  Receipt Date: 20060426
  Transmission Date: 20061013
  Serious: Yes (Death)
  Sender: FDA-Public Use
  Company Number: FR-JNJFOC-20060405965

PATIENT
  Age: 58 Year
  Sex: Male

DRUGS (3)
  1. REMICADE [Suspect]
     Dosage: RECEIVED ONE INFUSION
     Route: 042
  2. METHOTREXATE [Concomitant]
     Route: 065
  3. SULFASALAZINE [Concomitant]
     Route: 065

REACTIONS (1)
  - COMPLETED SUICIDE [None]
